FAERS Safety Report 22109797 (Version 1)
Quarter: 2023Q1

REPORT INFORMATION
  Report Type: Spontaneous
  Country: QA (occurrence: QA)
  Receive Date: 20230317
  Receipt Date: 20230317
  Transmission Date: 20230417
  Serious: Yes (Other)
  Sender: FDA-Public Use
  Company Number: QA-002147023-NVSC2023QA057162

PATIENT
  Age: 45 Year
  Sex: Male

DRUGS (2)
  1. CRIZANLIZUMAB [Suspect]
     Active Substance: CRIZANLIZUMAB
     Indication: Product used for unknown indication
     Dosage: UNK
     Route: 065
  2. CRIZANLIZUMAB [Suspect]
     Active Substance: CRIZANLIZUMAB
     Dosage: UNK, Q2MO
     Route: 065

REACTIONS (2)
  - Sickle cell anaemia with crisis [Recovering/Resolving]
  - Infusion related reaction [Recovering/Resolving]
